FAERS Safety Report 18781488 (Version 1)
Quarter: 2021Q1

REPORT INFORMATION
  Report Type: Other
  Country: US (occurrence: US)
  Receive Date: 20210125
  Receipt Date: 20210125
  Transmission Date: 20210419
  Serious: No
  Sender: FDA-Public Use
  Company Number: US-ROCHE-2755929

PATIENT
  Age: 48 Year
  Sex: Female
  Weight: 89.44 kg

DRUGS (8)
  1. EFFEXOR [Concomitant]
     Active Substance: VENLAFAXINE HYDROCHLORIDE
     Indication: DEPRESSION
     Route: 048
  2. PRILOSEC [Concomitant]
     Active Substance: OMEPRAZOLE MAGNESIUM
     Indication: GASTRITIS
     Route: 048
  3. OCREVUS [Suspect]
     Active Substance: OCRELIZUMAB
     Indication: RELAPSING-REMITTING MULTIPLE SCLEROSIS
     Dosage: PRESCRIBED AS INITIAL DOSE DAY 1 INFUSE 300 MG ,DAY 15 INFUSE 300 MG, SUBSEQUENT DOSE INFUSE 600 MG
     Route: 042
     Dates: start: 20210105
  4. OCREVUS [Suspect]
     Active Substance: OCRELIZUMAB
     Indication: RELAPSING MULTIPLE SCLEROSIS
  5. LEVOTHYROXINE. [Concomitant]
     Active Substance: LEVOTHYROXINE
     Indication: HYPOTHYROIDISM
     Route: 048
  6. FOLIC ACID. [Concomitant]
     Active Substance: FOLIC ACID
     Route: 048
  7. METOPROLOL. [Concomitant]
     Active Substance: METOPROLOL
     Route: 048
  8. GABAPENTIN. [Concomitant]
     Active Substance: GABAPENTIN
     Dosage: ONCE IN THE MORNING AND ONCE AT NIGHT
     Route: 048
     Dates: start: 20200909

REACTIONS (2)
  - COVID-19 [Unknown]
  - Paranasal sinus discomfort [Recovered/Resolved]

NARRATIVE: CASE EVENT DATE: 20210111
